FAERS Safety Report 7491475-2 (Version None)
Quarter: 2011Q2

REPORT INFORMATION
  Report Type: 
  Country: None (occurrence: None)
  Receive Date: 20110519
  Receipt Date: 20110516
  Transmission Date: 20111010
  Serious: Yes (Death, Other)
  Sender: FDA-Public Use
  Company Number: PHHY2011US36206

PATIENT
  Sex: Male

DRUGS (3)
  1. PREDNISONE [Concomitant]
     Indication: MYELODYSPLASTIC SYNDROME
     Dosage: 20 MG, BID
     Route: 048
     Dates: start: 20110202
  2. DACOREN [Concomitant]
     Indication: MYELODYSPLASTIC SYNDROME
     Dosage: 40 MG X 5 DAYS
     Route: 042
     Dates: start: 20110207, end: 20110311
  3. EXJADE [Suspect]
     Indication: IRON OVERLOAD
     Dosage: 2000 MG, QD
     Route: 048
     Dates: start: 20110201, end: 20110301

REACTIONS (4)
  - NEOPLASM MALIGNANT [None]
  - DIARRHOEA [None]
  - ABDOMINAL PAIN [None]
  - BLOOD UREA INCREASED [None]
